FAERS Safety Report 17417076 (Version 1)
Quarter: 2020Q1

REPORT INFORMATION
  Report Type: Spontaneous
  Country: US (occurrence: US)
  Receive Date: 20200130
  Receipt Date: 20200130
  Transmission Date: 20200409
  Serious: No
  Sender: FDA-Public Use
  Company Number: None

PATIENT
  Age: 11 Year
  Sex: Male

DRUGS (2)
  1. TADALAFIL 20MG TAB [Suspect]
     Active Substance: TADALAFIL
     Route: 048
     Dates: start: 20190130
  2. AMBRISENTAN [Suspect]
     Active Substance: AMBRISENTAN

REACTIONS (2)
  - Off label use [None]
  - Product use issue [None]

NARRATIVE: CASE EVENT DATE: 20200130
